FAERS Safety Report 4280096-0 (Version None)
Quarter: 2004Q1

REPORT INFORMATION
  Report Type: 
  Country: None (occurrence: None)
  Receive Date: 20040123
  Receipt Date: 20040108
  Transmission Date: 20041129
  Serious: Yes (Other)
  Sender: FDA-Public Use
  Company Number: S03-USA-04764-01

PATIENT
  Age: 38 Year
  Sex: Male

DRUGS (1)
  1. LEXAPRO [Suspect]
     Indication: DYSTHYMIC DISORDER
     Dosage: 10 MG QD PO
     Route: 048
     Dates: start: 20030710, end: 20031120

REACTIONS (4)
  - BLINDNESS [None]
  - ENCEPHALOMALACIA [None]
  - OPTIC NEURITIS [None]
  - PAPILLOEDEMA [None]
